FAERS Safety Report 8571980-8 (Version None)
Quarter: 2012Q3

REPORT INFORMATION
  Report Type: 
  Country: None (occurrence: None)
  Receive Date: 20120806
  Receipt Date: 20120731
  Transmission Date: 20120928
  Serious: Yes (Death, Hospitalization, Other)
  Sender: FDA-Public Use
  Company Number: US-CELGENEUS-163-21880-12061473

PATIENT
  Sex: Male

DRUGS (1)
  1. REVLIMID [Suspect]
     Indication: MULTIPLE MYELOMA
     Dosage: 10 MILLIGRAM
     Route: 048
     Dates: start: 20120201, end: 20120101

REACTIONS (6)
  - UPPER LIMB FRACTURE [None]
  - MULTIPLE MYELOMA [None]
  - MULTIPLE FRACTURES [None]
  - LOWER LIMB FRACTURE [None]
  - PAIN [None]
  - FALL [None]
